FAERS Safety Report 18307288 (Version 2)
Quarter: 2020Q4

REPORT INFORMATION
  Report Type: Report from Study
  Country: US (occurrence: US)
  Receive Date: 20200924
  Receipt Date: 20201201
  Transmission Date: 20210113
  Serious: No
  Sender: FDA-Public Use
  Company Number: NVSC2020US260557

PATIENT
  Age: 21 Year
  Sex: Female
  Weight: 87 kg

DRUGS (2)
  1. ILARIS [Suspect]
     Active Substance: CANAKINUMAB
     Indication: FAMILIAL MEDITERRANEAN FEVER
     Dosage: 150 MG,  EVERY 4 WEEKS
     Route: 058
  2. ILARIS [Suspect]
     Active Substance: CANAKINUMAB
     Indication: DEFICIENCY OF THE INTERLEUKIN-1 RECEPTOR ANTAGONIST
     Dosage: 150 MG, EVERY 4 WEEKS
     Route: 065
     Dates: start: 20200707

REACTIONS (1)
  - Drug ineffective [Unknown]

NARRATIVE: CASE EVENT DATE: 20200707
